FAERS Safety Report 11685074 (Version 2)
Quarter: 2015Q4

REPORT INFORMATION
  Report Type: Spontaneous
  Country: SE (occurrence: SE)
  Receive Date: 20151030
  Receipt Date: 20151110
  Transmission Date: 20160304
  Serious: Yes (Hospitalization)
  Sender: FDA-Public Use
  Company Number: SE-PFIZER INC-2015350960

PATIENT
  Sex: Female

DRUGS (4)
  1. DOLCONTIN [Concomitant]
     Active Substance: MORPHINE
  2. OMEPRAZOL [Concomitant]
     Active Substance: OMEPRAZOLE
  3. BETAPRED [Concomitant]
     Active Substance: BETAMETHASONE SODIUM PHOSPHATE
  4. XALKORI [Suspect]
     Active Substance: CRIZOTINIB
     Indication: NEOPLASM MALIGNANT
     Dosage: UNK
     Dates: start: 201507, end: 2015

REACTIONS (5)
  - Abdominal pain [Recovering/Resolving]
  - Hypertrichosis [Not Recovered/Not Resolved]
  - Disease progression [Unknown]
  - Pigmentation disorder [Recovering/Resolving]
  - Neoplasm malignant [Unknown]

NARRATIVE: CASE EVENT DATE: 2015
